FAERS Safety Report 24061263 (Version 2)
Quarter: 2024Q3

REPORT INFORMATION
  Report Type: Spontaneous
  Country: US (occurrence: US)
  Receive Date: 20240708
  Receipt Date: 20240721
  Transmission Date: 20241016
  Serious: Yes (Death, Other)
  Sender: BAXTER
  Company Number: US-BAXTER-2023BAX034508AA

PATIENT
  Age: 74 Year
  Sex: Male
  Weight: 86 kg

DRUGS (8)
  1. DOXORUBICIN [Suspect]
     Active Substance: DOXORUBICIN
     Dosage: TOTAL DOSE ADMINISTERED THIS COURSE (DOSE): 78 MG, LAST ADMINISTERED ON 18-JUN-2023
     Route: 065
     Dates: end: 20230618
  2. CYCLOPHOSPHAMIDE [Suspect]
     Active Substance: CYCLOPHOSPHAMIDE
     Dosage: TOTAL DOSE ADMINISTERED THIS COURSE (DOSE): 1860 MG, LAST ADMINISTERED ON 18-JUN-2023
     Route: 065
     Dates: end: 20230618
  3. CYTARABINE [Suspect]
     Active Substance: CYTARABINE
     Dosage: TOTAL DOSE ADMINISTERED THIS COURSE (DOSE): 8560 MG, LAST ADMINISTERED ON 17-JUN-2023
     Route: 065
     Dates: end: 20230617
  4. VINCRISTINE SULFATE [Suspect]
     Active Substance: VINCRISTINE SULFATE
     Dosage: TOTAL DOSE ADMINISTERED THIS COURSE (DOSE): 4 MG, LAST ADMINISTERED ON 25-JUN-2023
     Route: 065
     Dates: end: 20230625
  5. RITUXIMAB [Suspect]
     Active Substance: RITUXIMAB
     Dosage: TOTAL DOSE ADMINISTERED THIS COURSE (DOSE): 3140 MG, (MOAB C2B8 ANTI CD20, CHIMERIC), LAST ADMINISTE
     Route: 065
     Dates: end: 20230721
  6. METHOTREXATE SODIUM [Suspect]
     Active Substance: METHOTREXATE SODIUM
     Dosage: TOTAL DOSE ADMINISTERED THIS COURSE (DOSE): 849 MG, LAST ADMINISTERED ON 21-JUL-2023
     Route: 065
     Dates: end: 20230721
  7. METHYLPREDNISOLONE ACETATE [Suspect]
     Active Substance: METHYLPREDNISOLONE ACETATE
     Dosage: TOTAL DOSE ADMINISTERED THIS COURSE (DOSE): 200 MG, LAST ADMINISTERED ON 17-JUL-2023
     Route: 065
     Dates: end: 20230717
  8. DEXAMETHASONE [Suspect]
     Active Substance: DEXAMETHASONE
     Dosage: TOTAL DOSE ADMINISTERED THIS COURSE (DOSE): 160 MG, LAST ADMINISTERED ON 28-JUN-2023
     Route: 065
     Dates: end: 20230628

REACTIONS (3)
  - Sudden death [Fatal]
  - Dyspnoea [Unknown]
  - Headache [Unknown]

NARRATIVE: CASE EVENT DATE: 20231001
